FAERS Safety Report 24186752 (Version 2)
Quarter: 2024Q3

REPORT INFORMATION
  Report Type: Spontaneous
  Country: FR (occurrence: FR)
  Receive Date: 20240808
  Receipt Date: 20240816
  Transmission Date: 20241017
  Serious: Yes (Life-Threatening, Hospitalization, Other)
  Sender: AUROBINDO
  Company Number: FR-MERCK-0511FRA00099

PATIENT
  Age: 69 Year
  Sex: Female

DRUGS (12)
  1. DOXORUBICIN [Interacting]
     Active Substance: DOXORUBICIN
     Indication: Uterine cancer
     Dosage: 25 MILLIGRAM/SQ. METER, ONCE A DAY
     Route: 042
     Dates: start: 20051117
  2. FUROSEMIDE [Interacting]
     Active Substance: FUROSEMIDE
     Indication: Product used for unknown indication
     Dosage: 40 MILLIGRAM, ONCE A DAY
     Route: 048
     Dates: start: 20051118, end: 20051118
  3. FUROSEMIDE [Interacting]
     Active Substance: FUROSEMIDE
     Dosage: 60 MILLIGRAM
     Route: 048
     Dates: start: 20051119, end: 20051119
  4. FUROSEMIDE [Interacting]
     Active Substance: FUROSEMIDE
     Dosage: 140 MILLIGRAM
     Route: 048
     Dates: start: 20051120
  5. METHYLPREDNISOLONE [Interacting]
     Active Substance: METHYLPREDNISOLONE
     Indication: Prophylaxis of nausea and vomiting
     Dosage: 80 MILLIGRAM
     Route: 065
     Dates: start: 20051117
  6. IFOSFAMIDE [Interacting]
     Active Substance: IFOSFAMIDE
     Indication: Uterine cancer
     Dosage: 2.5 MILLIGRAM/SQ. METER, ONCE A DAY
     Route: 042
     Dates: start: 20051117
  7. CISPLATIN [Interacting]
     Active Substance: CISPLATIN
     Indication: Uterine cancer
     Dosage: 25 MILLIGRAM/SQ. METER, ONCE A DAY
     Route: 042
     Dates: start: 20051117
  8. EMEND [Interacting]
     Active Substance: APREPITANT
     Indication: Prophylaxis of nausea and vomiting
     Dosage: 125 MILLIGRAM, ONCE A DAY
     Route: 048
     Dates: start: 20051117, end: 20051117
  9. EMEND [Interacting]
     Active Substance: APREPITANT
     Dosage: 80 MILLIGRAM, ONCE A DAY
     Route: 048
     Dates: start: 20051118
  10. LOSARTAN POTASSIUM [Concomitant]
     Active Substance: LOSARTAN POTASSIUM
     Indication: Hypertension
     Dosage: UNK
     Route: 048
  11. GRANISETRON [Concomitant]
     Active Substance: GRANISETRON
     Indication: Prophylaxis of nausea and vomiting
     Dosage: 6 MILLIGRAM, ONCE A DAY
     Route: 042
     Dates: start: 20051117, end: 20051120
  12. METOCLOPRAMIDE [Concomitant]
     Active Substance: METOCLOPRAMIDE
     Indication: Prophylaxis of nausea and vomiting
     Dosage: UNK
     Route: 065
     Dates: start: 20051117

REACTIONS (5)
  - Renal failure [Recovered/Resolved with Sequelae]
  - Enterocolitis [Recovered/Resolved]
  - Gastrointestinal haemorrhage [Recovered/Resolved]
  - Myelosuppression [Recovered/Resolved]
  - Drug interaction [Recovered/Resolved]

NARRATIVE: CASE EVENT DATE: 20051117
